FAERS Safety Report 22370374 (Version 4)
Quarter: 2024Q2

REPORT INFORMATION
  Report Type: Spontaneous
  Country: JP (occurrence: JP)
  Receive Date: 20230526
  Receipt Date: 20240607
  Transmission Date: 20240716
  Serious: Yes (Death, Other)
  Sender: FDA-Public Use
  Company Number: JP-ALXN-A202306780

PATIENT
  Age: 31 Year
  Sex: Female

DRUGS (5)
  1. SOLIRIS [Suspect]
     Active Substance: ECULIZUMAB
     Indication: Atypical haemolytic uraemic syndrome
     Dosage: 900 MILLIGRAM, SINGLE
     Route: 042
     Dates: start: 20230510, end: 20230510
  2. PREDNISOLONE [Concomitant]
     Active Substance: PREDNISOLONE
     Indication: Hypereosinophilic syndrome
     Dosage: 1 MILLIGRAM/KILOGRAM
     Route: 065
  3. PREDNISOLONE [Concomitant]
     Active Substance: PREDNISOLONE
     Dosage: 2 MILLIGRAM/KILOGRAM
     Route: 065
  4. METHYLPREDNISOLONE [Concomitant]
     Active Substance: METHYLPREDNISOLONE
     Indication: Thrombotic microangiopathy
     Dosage: 1 GRAM (FOR 3 DAYS)
     Route: 065
  5. RITUXIMAB [Concomitant]
     Active Substance: RITUXIMAB
     Indication: Thrombotic thrombocytopenic purpura
     Dosage: 375 MILLIGRAM/ M2
     Route: 065

REACTIONS (2)
  - Atypical haemolytic uraemic syndrome [Fatal]
  - Disease progression [Fatal]

NARRATIVE: CASE EVENT DATE: 20230501
